FAERS Safety Report 6898477-5 (Version None)
Quarter: 2010Q3

REPORT INFORMATION
  Report Type: 
  Country: None (occurrence: None)
  Receive Date: 20100802
  Receipt Date: 20071019
  Transmission Date: 20110219
  Serious: No
  Sender: FDA-Public Use
  Company Number: US-PFIZER INC-2007089298

PATIENT
  Sex: Female
  Weight: 72.727 kg

DRUGS (10)
  1. LYRICA [Suspect]
     Indication: FIBROMYALGIA
  2. NEURONTIN [Suspect]
     Indication: FIBROMYALGIA
  3. GABAPENTIN [Suspect]
     Indication: FIBROMYALGIA
  4. CYMBALTA [Concomitant]
  5. LEXAPRO [Concomitant]
  6. AMBIEN [Concomitant]
  7. ALLEGRA [Concomitant]
  8. HYDROCODONE BITARTRATE [Concomitant]
  9. XANAX [Concomitant]
  10. ZANAFLEX [Concomitant]

REACTIONS (3)
  - HYPOAESTHESIA [None]
  - SOMNOLENCE [None]
  - WEIGHT INCREASED [None]
